FAERS Safety Report 7416270-1 (Version None)
Quarter: 2011Q2

REPORT INFORMATION
  Report Type: 
  Country: None (occurrence: None)
  Receive Date: 20110414
  Receipt Date: 20110407
  Transmission Date: 20111010
  Serious: Yes (Other)
  Sender: FDA-Public Use
  Company Number: A0921814A

PATIENT
  Age: 53 Year
  Sex: Female

DRUGS (2)
  1. KLONOPIN [Concomitant]
  2. LAMICTAL [Suspect]
     Indication: BIPOLAR DISORDER
     Dosage: 200MG TWICE PER DAY
     Route: 048
     Dates: start: 20060101

REACTIONS (5)
  - BALANCE DISORDER [None]
  - NAUSEA [None]
  - LYMPHADENOPATHY [None]
  - LIP ULCERATION [None]
  - VISUAL ACUITY REDUCED [None]
